FAERS Safety Report 18059366 (Version 1)
Quarter: 2020Q3

REPORT INFORMATION
  Report Type: Spontaneous
  Country: US (occurrence: US)
  Receive Date: 20200723
  Receipt Date: 20200723
  Transmission Date: 20201103
  Serious: Yes (Other)
  Sender: FDA-Public Use
  Company Number: None

PATIENT
  Age: 60 Year
  Sex: Female
  Weight: 103.5 kg

DRUGS (8)
  1. BYSTOLIC [Concomitant]
     Active Substance: NEBIVOLOL HYDROCHLORIDE
  2. IC DULOXETINE HCL DR 20MG CAP [Suspect]
     Active Substance: DULOXETINE HYDROCHLORIDE
     Indication: NEURALGIA
     Dosage: ?          QUANTITY:1 CAPSULE(S);?
     Route: 048
     Dates: start: 20191125, end: 20200721
  3. SYNTHROID [Concomitant]
     Active Substance: LEVOTHYROXINE SODIUM
  4. 600 ALPHA LIPOIC ACID [Concomitant]
  5. SINGULAIR [Concomitant]
     Active Substance: MONTELUKAST SODIUM
  6. INCRUSE ELLIPTA [Concomitant]
     Active Substance: UMECLIDINIUM BROMIDE
  7. ALIVE FOR WOMEN OVER 50 [Concomitant]
  8. D?2000 [Concomitant]

REACTIONS (11)
  - Confusional state [None]
  - Product substitution issue [None]
  - Feeling abnormal [None]
  - Neuralgia [None]
  - Gait disturbance [None]
  - Balance disorder [None]
  - Dizziness [None]
  - Loss of personal independence in daily activities [None]
  - Malaise [None]
  - Somnolence [None]
  - Product formulation issue [None]

NARRATIVE: CASE EVENT DATE: 20200720
